FAERS Safety Report 24023668 (Version 2)
Quarter: 2024Q3

REPORT INFORMATION
  Report Type: Report from Study
  Country: CO (occurrence: CO)
  Receive Date: 20240627
  Receipt Date: 20240710
  Transmission Date: 20241017
  Serious: No
  Sender: ROCHE
  Company Number: CO-ROCHE-3218313

PATIENT
  Age: 56 Year
  Sex: Male
  Weight: 77.0 kg

DRUGS (78)
  1. ALECTINIB [Suspect]
     Active Substance: ALECTINIB
     Indication: Lung squamous cell carcinoma metastatic
     Route: 048
     Dates: start: 20211103
  2. PREDNISOLONE [Concomitant]
     Active Substance: PREDNISOLONE
     Indication: Rheumatoid arthritis
     Route: 048
     Dates: start: 2021, end: 20211220
  3. PREDNISOLONE [Concomitant]
     Active Substance: PREDNISOLONE
     Route: 048
     Dates: start: 20220119, end: 20220627
  4. PREDNISOLONE [Concomitant]
     Active Substance: PREDNISOLONE
     Route: 048
     Dates: end: 20211220
  5. PREDNISOLONE [Concomitant]
     Active Substance: PREDNISOLONE
     Route: 048
     Dates: start: 20211221, end: 20220103
  6. PREDNISOLONE [Concomitant]
     Active Substance: PREDNISOLONE
     Route: 048
     Dates: start: 20220104, end: 20220118
  7. PREDNISOLONE [Concomitant]
     Active Substance: PREDNISOLONE
     Route: 048
     Dates: start: 20220628, end: 20220719
  8. PREDNISOLONE [Concomitant]
     Active Substance: PREDNISOLONE
     Route: 048
     Dates: start: 20220814, end: 20221007
  9. PREDNISOLONE [Concomitant]
     Active Substance: PREDNISOLONE
     Route: 048
     Dates: start: 20221008
  10. PREDNISOLONE [Concomitant]
     Active Substance: PREDNISOLONE
     Route: 048
     Dates: start: 20220720, end: 20220810
  11. PREDNISOLONE [Concomitant]
     Active Substance: PREDNISOLONE
     Route: 048
     Dates: start: 20220811, end: 20220813
  12. CHLOROQUINE [Concomitant]
     Active Substance: CHLOROQUINE
     Indication: Rheumatoid arthritis
     Route: 048
     Dates: start: 202104
  13. CHLOROQUINE [Concomitant]
     Active Substance: CHLOROQUINE
     Route: 048
     Dates: start: 20211221, end: 20220818
  14. CHLOROQUINE [Concomitant]
     Active Substance: CHLOROQUINE
     Route: 048
     Dates: start: 20220910
  15. METHOTREXATE [Concomitant]
     Active Substance: METHOTREXATE
     Indication: Rheumatoid arthritis
     Route: 048
     Dates: start: 2021, end: 20211220
  16. METHOTREXATE [Concomitant]
     Active Substance: METHOTREXATE
     Route: 048
     Dates: start: 2021, end: 20211220
  17. METHOTREXATE [Concomitant]
     Active Substance: METHOTREXATE
     Route: 048
     Dates: start: 20220127
  18. METHOTREXATE [Concomitant]
     Active Substance: METHOTREXATE
     Route: 048
     Dates: start: 20220326, end: 20220818
  19. METHOTREXATE [Concomitant]
     Active Substance: METHOTREXATE
     Route: 048
     Dates: start: 20211220, end: 20220224
  20. METHOTREXATE [Concomitant]
     Active Substance: METHOTREXATE
     Route: 048
     Dates: start: 20220225, end: 20220225
  21. HYDROCODONE [Concomitant]
     Active Substance: HYDROCODONE
     Indication: Analgesic therapy
     Route: 048
     Dates: end: 20211103
  22. PREGABALIN [Concomitant]
     Active Substance: PREGABALIN
     Indication: Analgesic therapy
     Route: 048
     Dates: end: 20211103
  23. PREGABALIN [Concomitant]
     Active Substance: PREGABALIN
     Route: 048
     Dates: start: 20211104, end: 20220325
  24. PREGABALIN [Concomitant]
     Active Substance: PREGABALIN
     Dates: start: 20220910, end: 20220921
  25. PREGABALIN [Concomitant]
     Active Substance: PREGABALIN
     Dates: start: 20220922, end: 20221003
  26. PREGABALIN [Concomitant]
     Active Substance: PREGABALIN
     Dates: start: 20221004
  27. PREGABALIN [Concomitant]
     Active Substance: PREGABALIN
     Route: 048
     Dates: start: 20220324, end: 20220909
  28. ACETAMINOPHEN [Concomitant]
     Active Substance: ACETAMINOPHEN
     Indication: Analgesic therapy
     Route: 048
     Dates: end: 20211103
  29. ACETAMINOPHEN [Concomitant]
     Active Substance: ACETAMINOPHEN
     Route: 048
     Dates: start: 202111
  30. DENOSUMAB [Concomitant]
     Active Substance: DENOSUMAB
     Indication: Prophylaxis
     Route: 058
     Dates: start: 20211201
  31. METHOTREXATE [Concomitant]
     Active Substance: METHOTREXATE
     Indication: Rheumatoid arthritis
     Route: 048
     Dates: start: 20220127
  32. CALCIUM CITRATE\VITAMIN D [Concomitant]
     Active Substance: CALCIUM CITRATE\VITAMIN D
     Indication: Vitamin D deficiency
     Route: 048
     Dates: start: 202111
  33. FOLIC ACID [Concomitant]
     Active Substance: FOLIC ACID
     Indication: Vitamin D deficiency
     Route: 048
     Dates: start: 202111
  34. BUPRENORPHINE [Concomitant]
     Active Substance: BUPRENORPHINE
     Dates: start: 202111, end: 20211203
  35. BUPRENORPHINE [Concomitant]
     Active Substance: BUPRENORPHINE
     Dates: start: 20211204, end: 20220325
  36. IPRATROPIUM BROMIDE [Concomitant]
     Active Substance: IPRATROPIUM BROMIDE\IPRATROPIUM BROMIDE ANHYDROUS
     Indication: Pyrexia
     Dosage: INHALANT , 2 PUFF
     Route: 055
     Dates: start: 20220819, end: 20220821
  37. IPRATROPIUM BROMIDE [Concomitant]
     Active Substance: IPRATROPIUM BROMIDE\IPRATROPIUM BROMIDE ANHYDROUS
     Dosage: INHALANT, 2 PUFF
     Route: 055
     Dates: start: 20220822, end: 20220915
  38. ALBUTEROL [Concomitant]
     Active Substance: ALBUTEROL
     Indication: Pyrexia
     Dosage: INHALANT, 2 PUFF 200 PUFF
     Route: 055
     Dates: start: 20220819, end: 20220915
  39. ENOXAPARIN [Concomitant]
     Active Substance: ENOXAPARIN
     Indication: Thrombosis prophylaxis
     Route: 058
     Dates: start: 20220819, end: 20220826
  40. LINEZOLID [Concomitant]
     Active Substance: LINEZOLID
     Indication: Pyrexia
     Route: 042
     Dates: start: 20220819, end: 20220823
  41. PIPERACILLIN SODIUM [Concomitant]
     Active Substance: PIPERACILLIN SODIUM
     Indication: Pyrexia
     Route: 042
     Dates: start: 20220819, end: 20220824
  42. TAZOBACTAM SODIUM [Concomitant]
     Active Substance: TAZOBACTAM SODIUM
     Indication: Pyrexia
     Route: 042
     Dates: start: 20220819, end: 20220824
  43. DIHYDROCODEINE [Concomitant]
     Active Substance: DIHYDROCODEINE
     Indication: Cough
     Dosage: LIQUID
     Route: 048
     Dates: start: 20220819
  44. DIHYDROCODEINE [Concomitant]
     Active Substance: DIHYDROCODEINE
     Route: 048
     Dates: start: 20220502
  45. OMEPRAZOLE [Concomitant]
     Active Substance: OMEPRAZOLE
     Indication: Dyspepsia
     Route: 048
     Dates: start: 20220819
  46. OMEPRAZOLE [Concomitant]
     Active Substance: OMEPRAZOLE
     Route: 048
     Dates: start: 20211104, end: 20220106
  47. PREDNISOLONE [Concomitant]
     Active Substance: PREDNISOLONE
     Route: 048
     Dates: start: 20220819
  48. FLUTICASONE FUROATE [Concomitant]
     Active Substance: FLUTICASONE FUROATE
     Dosage: INHALANT, 4 INHALATION
     Route: 055
     Dates: start: 20220822
  49. HYDROMORPHONE [Concomitant]
     Active Substance: HYDROMORPHONE
     Indication: Pain
     Route: 042
     Dates: start: 20220823, end: 20220825
  50. LOSARTAN [Concomitant]
     Active Substance: LOSARTAN
     Indication: Hypertension
     Route: 048
     Dates: start: 20220825, end: 20220915
  51. BEVACIZUMAB [Concomitant]
     Active Substance: BEVACIZUMAB
     Dates: start: 20220730, end: 20221026
  52. PACLITAXEL [Concomitant]
     Active Substance: PACLITAXEL
     Dates: start: 20220730, end: 20221026
  53. CARBOPLATIN [Concomitant]
     Active Substance: CARBOPLATIN
     Dates: start: 20220730, end: 20221026
  54. PEMETREXED [Concomitant]
     Active Substance: PEMETREXED
     Dates: start: 20220730, end: 20221026
  55. LEVOMEPROMAZINE [Concomitant]
     Active Substance: LEVOMEPROMAZINE
     Indication: Anxiety
     Dates: start: 20211104, end: 20211224
  56. ZOLEDRONIC ACID [Concomitant]
     Active Substance: ZOLEDRONIC ACID
     Route: 058
     Dates: start: 20211201, end: 20211201
  57. ZOLEDRONIC ACID [Concomitant]
     Active Substance: ZOLEDRONIC ACID
     Route: 058
     Dates: start: 20210103, end: 20220103
  58. ZOLEDRONIC ACID [Concomitant]
     Active Substance: ZOLEDRONIC ACID
     Route: 058
     Dates: start: 20210203, end: 20220203
  59. CALCIUM CITRATE [Concomitant]
     Active Substance: CALCIUM CITRATE
     Indication: Vitamin D deficiency
     Route: 048
     Dates: start: 20211202, end: 20220811
  60. LACTULOSE [Concomitant]
     Active Substance: LACTULOSE
     Indication: Constipation
     Dates: start: 20211104, end: 20220818
  61. LIDOCAINE HYDROCHLORIDE [Concomitant]
     Active Substance: LIDOCAINE HYDROCHLORIDE
     Route: 014
     Dates: start: 20220301, end: 20220301
  62. TRIAMCINOLONE ACETONIDE [Concomitant]
     Active Substance: TRIAMCINOLONE ACETONIDE
     Route: 014
     Dates: start: 20220301, end: 20220301
  63. MORPHINE HYDROCHLORIDE [Concomitant]
     Active Substance: MORPHINE HYDROCHLORIDE
     Dosage: 3 OTHER
     Route: 048
     Dates: start: 20220810, end: 20220818
  64. MORPHINE HYDROCHLORIDE [Concomitant]
     Active Substance: MORPHINE HYDROCHLORIDE
     Dosage: 3 OTHER
     Route: 048
     Dates: start: 20220910
  65. ERGOCALCIFEROL [Concomitant]
     Active Substance: ERGOCALCIFEROL
     Indication: Vitamin D deficiency
     Route: 048
     Dates: start: 20211202, end: 20220811
  66. ERGOCALCIFEROL [Concomitant]
     Active Substance: ERGOCALCIFEROL
     Route: 048
     Dates: start: 20220812
  67. CHOLECALCIFEROL [Concomitant]
     Active Substance: CHOLECALCIFEROL
     Indication: Vitamin D deficiency
     Route: 048
     Dates: start: 20220412, end: 20220622
  68. CHOLECALCIFEROL [Concomitant]
     Active Substance: CHOLECALCIFEROL
     Route: 048
     Dates: start: 20220623, end: 20220909
  69. CHOLECALCIFEROL [Concomitant]
     Active Substance: CHOLECALCIFEROL
     Route: 048
     Dates: start: 20220910
  70. ESOMEPRAZOLE [Concomitant]
     Active Substance: ESOMEPRAZOLE
     Indication: Dyspepsia
     Route: 048
     Dates: start: 20220107, end: 20220428
  71. ESOMEPRAZOLE [Concomitant]
     Active Substance: ESOMEPRAZOLE
     Route: 048
     Dates: start: 20220430, end: 20220818
  72. LORATADINE [Concomitant]
     Active Substance: LORATADINE
     Indication: Cough
     Route: 048
     Dates: start: 20220502, end: 20220615
  73. DEXAMETHASONE [Concomitant]
     Active Substance: DEXAMETHASONE
     Route: 030
     Dates: start: 20220915, end: 20220920
  74. ONDANSETRON [Concomitant]
     Active Substance: ONDANSETRON
     Route: 030
     Dates: start: 20220921, end: 20220921
  75. ACYCLOVIR [Concomitant]
     Active Substance: ACYCLOVIR
     Indication: Genital herpes
     Route: 048
     Dates: start: 20220921, end: 20220928
  76. CLOTRIMAZOLE [Concomitant]
     Active Substance: CLOTRIMAZOLE
     Indication: Genital herpes
     Route: 061
     Dates: start: 20220921, end: 20220928
  77. APIXABAN [Concomitant]
     Active Substance: APIXABAN
     Indication: Deep vein thrombosis
     Route: 048
     Dates: start: 20220924, end: 20220929
  78. HYDROXYCHLOROQUINE [Concomitant]
     Active Substance: HYDROXYCHLOROQUINE
     Indication: Rheumatoid arthritis
     Route: 048
     Dates: end: 20211220

REACTIONS (2)
  - Anxiety [Recovered/Resolved]
  - Constipation [Not Recovered/Not Resolved]

NARRATIVE: CASE EVENT DATE: 20211103
